FAERS Safety Report 10219587 (Version 1)
Quarter: 2014Q2

REPORT INFORMATION
  Report Type: Spontaneous
  Country: US (occurrence: None)
  Receive Date: 20140604
  Receipt Date: 20140604
  Transmission Date: 20141212
  Serious: Yes (Life-Threatening, Hospitalization)
  Sender: FDA-Public Use
  Company Number: None

PATIENT
  Age: 52 Year
  Sex: Female

DRUGS (1)
  1. FENTANYL 100 MCG/HR [Suspect]

REACTIONS (4)
  - Mental status changes [None]
  - Pyrexia [None]
  - Overdose [None]
  - Respiratory failure [None]
